FAERS Safety Report 8234178-9 (Version None)
Quarter: 2012Q1

REPORT INFORMATION
  Report Type: 
  Country: None (occurrence: None)
  Receive Date: 20120326
  Receipt Date: 20120321
  Transmission Date: 20120608
  Serious: Yes (Other)
  Sender: FDA-Public Use
  Company Number: JP-BRISTOL-MYERS SQUIBB COMPANY-16469520

PATIENT
  Sex: Male

DRUGS (1)
  1. HYDREA [Suspect]

REACTIONS (1)
  - VITREOUS HAEMORRHAGE [None]
